FAERS Safety Report 8455328-5 (Version None)
Quarter: 2012Q2

REPORT INFORMATION
  Report Type: 
  Country: None (occurrence: None)
  Receive Date: 20120621
  Receipt Date: 20120619
  Transmission Date: 20120825
  Serious: Yes (Other)
  Sender: FDA-Public Use
  Company Number: US-PFIZER INC-2012147318

PATIENT
  Sex: Female

DRUGS (3)
  1. LIPITOR [Suspect]
     Dosage: UNK
  2. NEURONTIN [Suspect]
     Dosage: UNK
  3. ALDACTONE [Suspect]
     Dosage: UNK

REACTIONS (4)
  - ROAD TRAFFIC ACCIDENT [None]
  - JOINT INJURY [None]
  - GAIT DISTURBANCE [None]
  - MASTECTOMY [None]
